FAERS Safety Report 15394981 (Version 1)
Quarter: 2018Q3

REPORT INFORMATION
  Report Type: Spontaneous
  Country: US (occurrence: US)
  Receive Date: 20180918
  Receipt Date: 20180918
  Transmission Date: 20181010
  Serious: Yes (Other)
  Sender: FDA-Public Use
  Company Number: US-009507513-1809USA006375

PATIENT
  Sex: Female

DRUGS (1)
  1. NOXAFIL [Suspect]
     Active Substance: POSACONAZOLE
     Indication: STEM CELL TRANSPLANT
     Dosage: 400 MG (4 TABLETS (100 MG TABLET))
     Route: 048
     Dates: end: 20180102

REACTIONS (6)
  - Blood potassium decreased [Recovering/Resolving]
  - Gastrointestinal obstruction [Recovering/Resolving]
  - Stomatitis [Recovering/Resolving]
  - Dyspnoea [Recovering/Resolving]
  - Hypoaesthesia [Recovering/Resolving]
  - Muscular weakness [Recovering/Resolving]
